FAERS Safety Report 19933531 (Version 2)
Quarter: 2021Q4

REPORT INFORMATION
  Report Type: Spontaneous
  Country: US (occurrence: US)
  Receive Date: 20211008
  Receipt Date: 20211012
  Transmission Date: 20220303
  Serious: Yes (Death, Hospitalization)
  Sender: FDA-Public Use
  Company Number: US-ROCHE-2928705

PATIENT
  Sex: Female
  Weight: 69.46 kg

DRUGS (5)
  1. OCREVUS [Suspect]
     Active Substance: OCRELIZUMAB
     Indication: Relapsing-remitting multiple sclerosis
     Dosage: THREE MOST RECENT OCRELIZUMAB INFUSION RECEIVED ON 23/SEP/2020, 25/FEB/2021, 26/JUL/2021
     Route: 042
  2. TIZANIDINE [Concomitant]
     Active Substance: TIZANIDINE
  3. CELEXA [Concomitant]
     Active Substance: CITALOPRAM HYDROBROMIDE
  4. NAPROXEN [Concomitant]
     Active Substance: NAPROXEN
  5. PFIZER-BIONTECH COVID-19 VACCINE [Concomitant]
     Active Substance: TOZINAMERAN
     Dosage: SUBSEQUENT DOSE: 01/APR/2021
     Dates: start: 20210304

REACTIONS (3)
  - COVID-19 [Fatal]
  - Paraesthesia [Unknown]
  - Pain in extremity [Unknown]
